FAERS Safety Report 9045155 (Version 1)
Quarter: 2013Q1

REPORT INFORMATION
  Report Type: Report from Study
  Country: US (occurrence: US)
  Receive Date: 20130130
  Receipt Date: 20130130
  Transmission Date: 20140127
  Serious: No
  Sender: FDA-Public Use
  Company Number: US-ABBOTT-12P-163-0970492-00

PATIENT
  Sex: Male
  Weight: 101 kg

DRUGS (6)
  1. HUMIRA 40 MG/0.8 ML PEN [Suspect]
     Indication: ANKYLOSING SPONDYLITIS
     Dates: start: 20120503
  2. ASPIRIN [Concomitant]
     Indication: CARDIOVASCULAR EVENT PROPHYLAXIS
  3. BENADRYL [Concomitant]
     Indication: HYPERSENSITIVITY
  4. LISINOPRIL [Concomitant]
     Indication: HYPERTENSION
  5. MULTIVITAMIN [Concomitant]
     Indication: VITAMIN SUPPLEMENTATION
  6. IBUPROFEN [Concomitant]
     Indication: PAIN

REACTIONS (1)
  - Infectious mononucleosis [Not Recovered/Not Resolved]
